FAERS Safety Report 8484712 (Version 2)
Quarter: 2012Q4

REPORT INFORMATION
  Report Type: 
  Country: DK (occurrence: DK)
  Receive Date: 20120330
  Receipt Date: 20120919
  Transmission Date: 20130627
  Serious: Yes (Other)
  Sender: FDA-Public Use
  Company Number: DK-PFIZER INC-2006041159

PATIENT
  Age: 55 Year
  Sex: Male

DRUGS (4)
  1. HYDROCORTISONE SODIUM SUCCINATE [Suspect]
     Indication: HYPERSENSITIVITY
     Dosage: 100 mg daily dosage
     Route: 042
  2. CLEMASTINE [Suspect]
     Indication: HYPERSENSITIVITY
     Dosage: 2 mg daily dosage
     Route: 042
  3. ADRENALINE [Suspect]
     Indication: ANAPHYLACTIC REACTION
     Dosage: 1 mg daily dosage
     Route: 042
  4. ISOTONIC SOLUTIONS [Concomitant]
     Dosage: UNK
     Route: 042

REACTIONS (12)
  - Coronary artery stenosis [Recovered/Resolved with Sequelae]
  - Altered state of consciousness [Recovered/Resolved]
  - Ventricular hypokinesia [Recovered/Resolved]
  - Myocardial ischaemia [Recovered/Resolved]
  - Anaphylactic reaction [Recovered/Resolved]
  - Bradycardia [Recovered/Resolved]
  - Dyspnoea [Recovered/Resolved]
  - Blood pressure decreased [Recovered/Resolved]
  - Electrocardiogram change [Recovered/Resolved]
  - Chest pain [Recovered/Resolved]
  - Pallor [Recovered/Resolved]
  - Cold sweat [Recovered/Resolved]
